FAERS Safety Report 11542663 (Version 1)
Quarter: 2015Q3

REPORT INFORMATION
  Report Type: Spontaneous
  Country: US (occurrence: US)
  Receive Date: 20150923
  Receipt Date: 20150923
  Transmission Date: 20151125
  Serious: Yes (Hospitalization)
  Sender: FDA-Public Use
  Company Number: US-UNITED THERAPEUTICS-UNT-2015-011574

PATIENT
  Sex: Female

DRUGS (1)
  1. REMODULIN [Suspect]
     Active Substance: TREPROSTINIL
     Indication: PRODUCT USED FOR UNKNOWN INDICATION
     Dosage: 0.132 ?G/KG, CONTINUING
     Route: 058
     Dates: start: 20140807

REACTIONS (9)
  - Renal failure [Unknown]
  - Nausea [Unknown]
  - Diarrhoea [Unknown]
  - Device dislocation [Unknown]
  - Drug dose omission [Unknown]
  - Vomiting [Unknown]
  - Headache [Unknown]
  - Palpitations [Unknown]
  - Decreased appetite [Unknown]

NARRATIVE: CASE EVENT DATE: 20150915
